FAERS Safety Report 15104301 (Version 1)
Quarter: 2018Q3

REPORT INFORMATION
  Report Type: Spontaneous
  Country: CN (occurrence: CN)
  Receive Date: 20180703
  Receipt Date: 20180703
  Transmission Date: 20181010
  Serious: Yes (Other)
  Sender: FDA-Public Use
  Company Number: CN-JNJFOC-20180636539

PATIENT

DRUGS (1)
  1. SPORANOX [Suspect]
     Active Substance: ITRACONAZOLE
     Indication: FUNGAL INFECTION
     Route: 048

REACTIONS (5)
  - Gastrointestinal disorder [Unknown]
  - Neurotoxicity [Unknown]
  - Visual impairment [Unknown]
  - Hepatic function abnormal [Unknown]
  - Renal impairment [Unknown]
